FAERS Safety Report 6038449-6 (Version None)
Quarter: 2009Q1

REPORT INFORMATION
  Report Type: 
  Country: None (occurrence: None)
  Receive Date: 20090115
  Receipt Date: 20090108
  Transmission Date: 20090719
  Serious: Yes (Death)
  Sender: FDA-Public Use
  Company Number: US-ABBOTT-09P-163-0497010-00

PATIENT
  Age: 41 Year
  Sex: Male

DRUGS (6)
  1. CISATRACURIUM [Suspect]
     Indication: DRUG USE FOR UNKNOWN INDICATION
     Dosage: ROUTE:  INGESTION
     Route: 051
  2. SUCCINYLCHOLINE [Suspect]
     Indication: DRUG USE FOR UNKNOWN INDICATION
     Dosage: ROUTE:  INGESTION
     Route: 051
  3. MIDAZOLAM HCL [Suspect]
     Indication: DRUG USE FOR UNKNOWN INDICATION
     Dosage: ROUTE:  INGESTION
     Route: 051
  4. PROPOFOL [Suspect]
     Indication: DRUG USE FOR UNKNOWN INDICATION
     Dosage: ROUTE:  INGESTIONS
     Route: 051
  5. VENLAFAXINE HCL [Suspect]
     Indication: DRUG USE FOR UNKNOWN INDICATION
     Dosage: ROUTE:  INGESTION
     Route: 051
  6. NEOSTIGMINE [Suspect]
     Indication: DRUG USE FOR UNKNOWN INDICATION
     Dosage: ROUTE:  INGESTION
     Route: 050

REACTIONS (1)
  - CARDIO-RESPIRATORY ARREST [None]
